FAERS Safety Report 6102733-8 (Version None)
Quarter: 2009Q1

REPORT INFORMATION
  Report Type: 
  Country: None (occurrence: None)
  Receive Date: 20090304
  Receipt Date: 20090224
  Transmission Date: 20090719
  Serious: Yes (Hospitalization)
  Sender: FDA-Public Use
  Company Number: CA-BRISTOL-MYERS SQUIBB COMPANY-14521033

PATIENT
  Age: 61 Year
  Sex: Female

DRUGS (14)
  1. ORENCIA [Suspect]
     Indication: RHEUMATOID ARTHRITIS
     Dosage: ALSO TAKEN ON 30APR,14MAY,17JUN,15JUL,13AUG,9SEP,8OCT,5NOV,2DEC08,5,27JAN09
     Route: 042
     Dates: start: 20080415
  2. METHOTREXATE TABS [Concomitant]
  3. DILAUDID [Concomitant]
  4. RAMIPRIL [Concomitant]
  5. PARIET [Concomitant]
  6. HYDROMORPHONE HCL [Concomitant]
     Dosage: 6MG OF 3 TABS TAKEN.
  7. VITAMIN D [Concomitant]
  8. PREDNISONE [Concomitant]
  9. ASPIRIN [Concomitant]
  10. SIMVASTATIN [Concomitant]
  11. DIDRONEL [Concomitant]
     Dosage: 1 DF = 1TAB
  12. CALCIUM CARBONATE [Concomitant]
     Dosage: 1 DF = 2TABS OF 500MG
  13. GABAPENTIN [Concomitant]
  14. AMOXICILLIN [Concomitant]
     Dosage: 4 DF = 4TABS OF 500MG TAKEN AT 1 HOUR BEFORE DENTAL APPOINTMENT.

REACTIONS (2)
  - HEPATIC FAILURE [None]
  - SEPSIS [None]
